FAERS Safety Report 4461660-2 (Version None)
Quarter: 2004Q3

REPORT INFORMATION
  Report Type: 
  Country: None (occurrence: None)
  Receive Date: 20040924
  Receipt Date: 20040913
  Transmission Date: 20050211
  Serious: Yes (Hospitalization)
  Sender: FDA-Public Use
  Company Number: US-2004-026732

PATIENT
  Age: 36 Year
  Sex: Female

DRUGS (9)
  1. MIRENA [Suspect]
     Indication: CONTRACEPTION
     Dosage: 20 UG/DAY, CONT, INTRA-UTERINE
     Route: 015
  2. COUMADIN [Concomitant]
  3. INSULIN [Concomitant]
  4. ACTOS           /USA/ (PIOGLITAZONE HYDROCHLORIDE) [Concomitant]
  5. GLUCOTROL [Concomitant]
  6. GLUCOVANCE [Concomitant]
  7. PREVACID [Concomitant]
  8. TYLENOL W/ CODEINE NO. 3 [Concomitant]
  9. ULTRASE (PANCRELIPASE) [Concomitant]

REACTIONS (14)
  - BLOOD GLUCOSE INCREASED [None]
  - BLOOD POTASSIUM DECREASED [None]
  - ESCHERICHIA BACTERAEMIA [None]
  - ESCHERICHIA URINARY TRACT INFECTION [None]
  - GASTRIC VARICES [None]
  - GLUCOSE URINE PRESENT [None]
  - HAEMOPTYSIS [None]
  - HEPATOSPLENOMEGALY [None]
  - HYPERCOAGULATION [None]
  - HYPOCOAGULABLE STATE [None]
  - MEDICATION ERROR [None]
  - OVARIAN CYST [None]
  - PANCREATITIS [None]
  - VAGINAL HAEMORRHAGE [None]
